FAERS Safety Report 17401724 (Version 1)
Quarter: 2020Q1

REPORT INFORMATION
  Report Type: Spontaneous
  Country: US (occurrence: US)
  Receive Date: 20200211
  Receipt Date: 20200211
  Transmission Date: 20200409
  Serious: No
  Sender: FDA-Public Use
  Company Number: US-NEUROCRINE BIOSCIENCES INC.-2020NBI00307

PATIENT
  Age: 55 Year
  Sex: Male

DRUGS (3)
  1. INGREZZA [Suspect]
     Active Substance: VALBENAZINE
     Indication: PRODUCT USED FOR UNKNOWN INDICATION
  2. INGREZZA [Suspect]
     Active Substance: VALBENAZINE
  3. INGREZZA [Suspect]
     Active Substance: VALBENAZINE
     Dates: start: 202001

REACTIONS (1)
  - Drooling [Unknown]

NARRATIVE: CASE EVENT DATE: 201912
